FAERS Safety Report 17423304 (Version 1)
Quarter: 2020Q1

REPORT INFORMATION
  Report Type: Spontaneous
  Country: IN (occurrence: IN)
  Receive Date: 20200217
  Receipt Date: 20200217
  Transmission Date: 20200409
  Serious: Yes (Hospitalization, Other)
  Sender: FDA-Public Use
  Company Number: IN-LUPIN PHARMACEUTICALS INC.-2020-00657

PATIENT
  Age: 34 Year
  Sex: Male

DRUGS (8)
  1. FLUCYTOSINE. [Suspect]
     Active Substance: FLUCYTOSINE
     Dosage: UNK
     Route: 065
  2. AMPHOTERICIN B DEOXYCHOLATE [Concomitant]
     Active Substance: AMPHOTERICIN B
     Indication: MENINGITIS CRYPTOCOCCAL
     Dosage: 1 MILLIGRAM/KILOGRAM, QD
     Route: 042
  3. FLUCYTOSINE. [Suspect]
     Active Substance: FLUCYTOSINE
     Indication: MENINGITIS CRYPTOCOCCAL
     Dosage: 100 MILLIGRAM/KILOGRAM, QD
     Route: 042
  4. FLUCONAZOLE. [Suspect]
     Active Substance: FLUCONAZOLE
     Indication: MENINGITIS CRYPTOCOCCAL
     Dosage: 800 MILLIGRAM, QD
     Route: 048
  5. AMPHOTERICIN B, LIPOSOME [Concomitant]
     Active Substance: AMPHOTERICIN B
     Dosage: UNK (DAY-28 TO DAY-70)
     Route: 065
  6. AMPHOTERICIN B, LIPOSOME [Concomitant]
     Active Substance: AMPHOTERICIN B
     Indication: MENINGITIS CRYPTOCOCCAL
     Dosage: 3 MILLIGRAM/KILOGRAM, QD
     Route: 065
  7. FLUCONAZOLE. [Suspect]
     Active Substance: FLUCONAZOLE
     Dosage: 800 MILLIGRAM, QD (DAY-70 TO DAY-130)
     Route: 048
  8. FLUCONAZOLE. [Suspect]
     Active Substance: FLUCONAZOLE
     Dosage: 400 MILLIGRAM, QD (DAY-130 TO DAY-480)
     Route: 048

REACTIONS (6)
  - Pseudomembranous colitis [Recovering/Resolving]
  - Condition aggravated [Recovering/Resolving]
  - Axonal neuropathy [Recovering/Resolving]
  - Immune reconstitution inflammatory syndrome [Recovering/Resolving]
  - Meningitis cryptococcal [Recovering/Resolving]
  - Incorrect product administration duration [Unknown]
